FAERS Safety Report 13376410 (Version 1)
Quarter: 2017Q1

REPORT INFORMATION
  Report Type: Spontaneous
  Country: US (occurrence: US)
  Receive Date: 20170328
  Receipt Date: 20170328
  Transmission Date: 20170429
  Serious: Yes (Other)
  Sender: FDA-Public Use
  Company Number: US-PFIZER INC-2017129622

PATIENT
  Age: 73 Year
  Sex: Female
  Weight: 104 kg

DRUGS (1)
  1. LYRICA [Suspect]
     Active Substance: PREGABALIN
     Indication: NEUROPATHY PERIPHERAL
     Dosage: 1 DF, UNK
     Route: 048

REACTIONS (9)
  - Local swelling [Unknown]
  - Dizziness [Unknown]
  - Mouth swelling [Unknown]
  - Pain in extremity [Unknown]
  - Swelling face [Unknown]
  - Suicidal ideation [Unknown]
  - Expired product administered [Unknown]
  - Asthenia [Unknown]
  - Dyspnoea [Unknown]
